FAERS Safety Report 4500607-7 (Version None)
Quarter: 2004Q4

REPORT INFORMATION
  Report Type: 
  Country: None (occurrence: None)
  Receive Date: 20041115
  Receipt Date: 20041102
  Transmission Date: 20050328
  Serious: Yes (Death)
  Sender: FDA-Public Use
  Company Number: US-JNJFOC-20040502832

PATIENT
  Sex: Female
  Weight: 55 kg

DRUGS (14)
  1. DURAGESIC [Suspect]
     Route: 062
  2. DURAGESIC [Suspect]
     Route: 062
  3. DURAGESIC [Suspect]
     Route: 062
  4. DURAGESIC [Suspect]
     Route: 062
  5. NEURONTIN [Suspect]
  6. EFFEXOR [Suspect]
     Indication: DEPRESSION
  7. ATENOLOL [Concomitant]
  8. LORAZEPAM [Concomitant]
  9. FLEXERIL [Concomitant]
  10. BEXTRA [Concomitant]
  11. TEMAZEPAM [Concomitant]
  12. TOPAMAX [Concomitant]
  13. AMBIEN [Concomitant]
  14. ZYBAN [Concomitant]

REACTIONS (28)
  - APNOEA [None]
  - BLOOD URINE PRESENT [None]
  - CARDIO-RESPIRATORY ARREST [None]
  - COMA [None]
  - COMPLETED SUICIDE [None]
  - DIZZINESS [None]
  - FALL [None]
  - FOREIGN BODY ASPIRATION [None]
  - GASTRIC PERFORATION [None]
  - HAEMATEMESIS [None]
  - HEADACHE [None]
  - HEPATIC CONGESTION [None]
  - INJURY [None]
  - INSOMNIA [None]
  - MEDICATION ERROR [None]
  - MUSCLE SPASMS [None]
  - NARCOTIC INTOXICATION [None]
  - OVERDOSE [None]
  - PAIN EXACERBATED [None]
  - PAIN IN EXTREMITY [None]
  - PETECHIAE [None]
  - PHARMACEUTICAL PRODUCT COMPLAINT [None]
  - PRECANCEROUS CELLS PRESENT [None]
  - PULMONARY CONGESTION [None]
  - PULSE ABSENT [None]
  - RASH [None]
  - ULNAR NERVE INJURY [None]
  - ULNAR NERVE PALSY [None]
